FAERS Safety Report 4619882-3 (Version None)
Quarter: 2005Q1

REPORT INFORMATION
  Report Type: 
  Country: None (occurrence: None)
  Receive Date: 20050328
  Receipt Date: 20050318
  Transmission Date: 20050727
  Serious: Yes (Life-Threatening, Hospitalization)
  Sender: FDA-Public Use
  Company Number: FR-SOLVAY-00205000872

PATIENT
  Age: 33 Year
  Sex: Female

DRUGS (2)
  1. ESTROGEL [Suspect]
     Indication: HIRSUTISM
     Dosage: DAILY DOSE:  UNKNOWN
     Route: 062
     Dates: start: 19870801, end: 19981201
  2. ANDROCUR [Suspect]
     Indication: HIRSUTISM
     Dosage: DAILY DOSE:  UNKNOWN
     Route: 048
     Dates: start: 19870801, end: 19981201

REACTIONS (1)
  - MENINGIOMA [None]
